FAERS Safety Report 5896601-4 (Version None)
Quarter: 2008Q3

REPORT INFORMATION
  Report Type: 
  Country: None (occurrence: None)
  Receive Date: 20080924
  Receipt Date: 20070825
  Transmission Date: 20090109
  Serious: No
  Sender: FDA-Public Use
  Company Number: US-BAYER-200712913BWH

PATIENT
  Age: 39 Year
  Sex: Female
  Weight: 73 kg

DRUGS (4)
  1. AVELOX [Suspect]
     Indication: SINUSITIS
     Route: 048
     Dates: start: 20070821, end: 20070824
  2. PRESCRIPTION WITH CODEINE [Concomitant]
     Indication: MIGRAINE
  3. BENADRYL [Concomitant]
     Indication: MYALGIA
  4. IBUPROFEN [Concomitant]
     Indication: MYALGIA

REACTIONS (4)
  - MIGRAINE [None]
  - OEDEMA PERIPHERAL [None]
  - PAIN IN EXTREMITY [None]
  - PYREXIA [None]
